FAERS Safety Report 6987603-5 (Version None)
Quarter: 2010Q3

REPORT INFORMATION
  Report Type: 
  Country: None (occurrence: None)
  Receive Date: 20100914
  Receipt Date: 20100907
  Transmission Date: 20110219
  Serious: Yes (Life-Threatening, Hospitalization)
  Sender: FDA-Public Use
  Company Number: 2010US003597

PATIENT
  Age: 21 Year
  Sex: Male
  Weight: 60 kg

DRUGS (4)
  1. AMBISOME [Suspect]
     Indication: FUNGAL INFECTION
     Dosage: 600 MG, UID/QD, IV NOS
     Route: 042
     Dates: start: 20100726, end: 20100902
  2. AMOXICILLINE (AMOXICILLIN SODIUM) [Suspect]
     Indication: OSTEITIS
     Dosage: 12 G UID/QD, IV NOS
     Route: 042
     Dates: start: 20100806, end: 20100902
  3. VANCOMYCIN [Suspect]
     Indication: OSTEITIS
     Dosage: 2 G, UID/QD, IV NOS
     Route: 042
     Dates: start: 20100806, end: 20100902
  4. RIFAMPICIN [Suspect]
     Indication: OSTEITIS
     Dosage: 1200 MG, UID/QD, ORAL
     Route: 048
     Dates: start: 20100806, end: 20100902

REACTIONS (1)
  - NEUTROPENIA [None]
